FAERS Safety Report 5869598-0 (Version None)
Quarter: 2008Q3

REPORT INFORMATION
  Report Type: 
  Country: None (occurrence: None)
  Receive Date: 20080904
  Receipt Date: 20070726
  Transmission Date: 20090109
  Serious: No
  Sender: FDA-Public Use
  Company Number: US-KINGPHARMUSA00001-K200700950

PATIENT

DRUGS (5)
  1. CYTOMEL [Suspect]
     Indication: HYPOTHYROIDISM
     Dosage: 25 MCG, QD
     Route: 048
     Dates: start: 20070701, end: 20071201
  2. ARMOUR THYROID [Concomitant]
     Indication: BLOOD THYROID STIMULATING HORMONE DECREASED
     Dosage: 3/4 -1 GRAM, QD
     Route: 048
     Dates: start: 20070501, end: 20071101
  3. ARMOUR THYROID [Concomitant]
     Indication: HYPOTHYROIDISM
  4. LOVASTATIN [Concomitant]
     Indication: BLOOD CHOLESTEROL INCREASED
     Dosage: 20 MG, QD
     Dates: end: 20071101
  5. MULTIVITAMIN                       /00831701/ [Concomitant]
     Dates: end: 20071101

REACTIONS (3)
  - BLOOD TESTOSTERONE INCREASED [None]
  - INTENTIONAL DRUG MISUSE [None]
  - PROSTATIC SPECIFIC ANTIGEN INCREASED [None]
